FAERS Safety Report 5399548-5 (Version None)
Quarter: 2007Q3

REPORT INFORMATION
  Report Type: 
  Country: None (occurrence: None)
  Receive Date: 20070727
  Receipt Date: 20070717
  Transmission Date: 20080115
  Serious: Yes (Hospitalization)
  Sender: FDA-Public Use
  Company Number: US-ASTRAZENECA-2007UW17150

PATIENT

DRUGS (5)
  1. TOPROL-XL [Suspect]
     Route: 048
  2. TOPROL-XL [Suspect]
     Route: 048
  3. TOPROL-XL [Suspect]
     Route: 048
  4. MAXZIDE [Concomitant]
  5. MAXZIDE [Concomitant]

REACTIONS (4)
  - BASEDOW'S DISEASE [None]
  - CONDITION AGGRAVATED [None]
  - DYSPNOEA [None]
  - SLEEP DISORDER [None]
